FAERS Safety Report 6250631-1 (Version None)
Quarter: 2009Q2

REPORT INFORMATION
  Report Type: 
  Country: None (occurrence: None)
  Receive Date: 20090630
  Receipt Date: 20090623
  Transmission Date: 20091009
  Serious: Yes (Hospitalization)
  Sender: FDA-Public Use
  Company Number: US-AMGEN-US351922

PATIENT
  Sex: Female
  Weight: 76.3 kg

DRUGS (19)
  1. NPLATE [Suspect]
     Indication: IDIOPATHIC THROMBOCYTOPENIC PURPURA
     Route: 058
     Dates: start: 20090526
  2. ATIVAN [Concomitant]
  3. VANCOMYCIN [Concomitant]
  4. LIPITOR [Concomitant]
  5. GLIPIZIDE [Concomitant]
  6. GLIPIZIDE [Concomitant]
  7. SYNTHROID [Concomitant]
  8. MULTIVITAMIN [Concomitant]
  9. FOLIC ACID [Concomitant]
  10. VITAMIN B-12 [Concomitant]
  11. CYMBALTA [Concomitant]
  12. LOPRESSOR [Concomitant]
  13. K-DUR [Concomitant]
  14. ROZEREM [Concomitant]
  15. LASIX [Concomitant]
  16. MULTI-VITAMINS [Concomitant]
  17. MEGESTROL ACETATE [Concomitant]
  18. PRILOSEC [Concomitant]
  19. TYLENOL (CAPLET) [Concomitant]

REACTIONS (8)
  - ANAEMIA [None]
  - ASTHENIA [None]
  - CARDIAC FAILURE CONGESTIVE [None]
  - CHRONIC OBSTRUCTIVE PULMONARY DISEASE [None]
  - MYOCARDIAL INFARCTION [None]
  - PNEUMONIA [None]
  - THROMBOCYTOPENIA [None]
  - URINARY TRACT INFECTION [None]
